FAERS Safety Report 7637658-X (Version None)
Quarter: 2011Q3

REPORT INFORMATION
  Report Type: 
  Country: None (occurrence: None)
  Receive Date: 20110726
  Receipt Date: 20110715
  Transmission Date: 20111222
  Serious: Yes (Other)
  Sender: FDA-Public Use
  Company Number: AT-AMGEN-AUTCT2011009791

PATIENT
  Age: 63 Year

DRUGS (12)
  1. DENOSUMAB [Suspect]
     Indication: BREAST CANCER METASTATIC
     Dosage: UNK UNK, Q4WK
     Route: 058
     Dates: start: 20070305, end: 20100526
  2. HALCION [Concomitant]
     Dosage: 0.125 MG, UNK
     Route: 048
     Dates: start: 20070402
  3. LEVOTHYROXINE SODIUM [Concomitant]
     Dosage: 100 A?G, QD
     Route: 048
     Dates: start: 20001201
  4. ESCITALOPRAM [Concomitant]
     Dosage: 10 MG, QD
     Route: 048
     Dates: start: 20050101
  5. CAL D VITA [Concomitant]
     Dosage: UNK UNK, BID
     Route: 048
     Dates: start: 20070220
  6. FULVESTRANT [Concomitant]
  7. BELOC [Concomitant]
     Dosage: 50 MG, PRN
     Route: 048
     Dates: start: 20070423
  8. SUPRADYN [Concomitant]
     Dosage: UNK UNK, PRN
     Route: 048
     Dates: start: 20071105
  9. PASSEDAN-NERVENTROPFEN [Concomitant]
     Dosage: 20 UNK, UNK
     Route: 048
     Dates: start: 20070312
  10. MAGNESIUM VERLA [Concomitant]
     Dosage: UNK
     Route: 048
     Dates: start: 20050601
  11. DENOSUMAB [Suspect]
     Dosage: 1.7 MG, Q4WK
     Route: 058
     Dates: start: 20090722, end: 20100526
  12. NEXIUM [Concomitant]
     Dosage: 20 MG, QD
     Dates: start: 20031101

REACTIONS (1)
  - OSTEONECROSIS OF JAW [None]
